FAERS Safety Report 4871281-5 (Version None)
Quarter: 2005Q4

REPORT INFORMATION
  Report Type: 
  Country: None (occurrence: None)
  Receive Date: 20051229
  Receipt Date: 20051214
  Transmission Date: 20060501
  Serious: Yes (Hospitalization)
  Sender: FDA-Public Use
  Company Number: 2005-134981-NL

PATIENT
  Age: 6 Month
  Sex: Female
  Weight: 0.936 kg

DRUGS (1)
  1. NUVARING [Suspect]
     Dosage: TRANSPLACENTAL
     Route: 064

REACTIONS (6)
  - CAESAREAN SECTION [None]
  - COMPLICATION OF DELIVERY [None]
  - DRUG EXPOSURE DURING PREGNANCY [None]
  - HAEMORRHAGE INTRACRANIAL [None]
  - MULTIPLE PREGNANCY [None]
  - PREMATURE BABY [None]
